FAERS Safety Report 8760257 (Version 1)
Quarter: 2012Q4

REPORT INFORMATION
  Report Type: Spontaneous
  Country: US (occurrence: None)
  Receive Date: 20120828
  Receipt Date: 20120828
  Transmission Date: 20130627
  Serious: No
  Sender: FDA-Public Use
  Company Number: None

PATIENT

DRUGS (1)
  1. LANSOPRAZOLE, 30MG CAP, SANDOZ [Suspect]
     Indication: GERD
     Dosage: several months
     Route: 048

REACTIONS (1)
  - Drug ineffective [None]
